FAERS Safety Report 8335030-0 (Version None)
Quarter: 2012Q2

REPORT INFORMATION
  Report Type: 
  Country: None (occurrence: None)
  Receive Date: 20120503
  Receipt Date: 20120424
  Transmission Date: 20120825
  Serious: Yes (Hospitalization, Other)
  Sender: FDA-Public Use
  Company Number: US-ASTRAZENECA-2011SE78905

PATIENT
  Age: 46 Year
  Sex: Female
  Weight: 103.9 kg

DRUGS (24)
  1. LIPITOR [Concomitant]
     Route: 048
  2. NEXIUM [Suspect]
     Indication: HIATUS HERNIA
     Route: 048
     Dates: start: 20110901
  3. ASPIRIN [Concomitant]
     Route: 048
  4. CARBINOXAMINE MALEATE [Concomitant]
     Route: 048
  5. GLYBURIDE [Concomitant]
     Route: 048
  6. LASIX [Concomitant]
     Route: 048
  7. LORTAB [Concomitant]
     Dosage: 10/500 ONE QID AND HS
     Route: 048
  8. CIPROFLOXACIN HCL [Concomitant]
     Route: 048
  9. METFORMIN HCL [Concomitant]
     Route: 048
  10. VENTOLIN HFA [Concomitant]
     Dosage: 90 MCG/INH, 2 PUFFS TID
     Route: 055
  11. LIPITOR [Concomitant]
     Route: 048
  12. PHENERGAN [Concomitant]
     Dosage: TAKE ONE EVERY 4-6 HOURS PRN
  13. LISINOPRIL [Suspect]
     Route: 048
  14. SEROQUEL [Suspect]
     Route: 048
  15. POTASSIUM CHLORIDE [Concomitant]
     Dosage: 20, 1 EVERY AM
     Route: 048
  16. LOPRESSOR [Concomitant]
     Route: 048
  17. ZITHROMAX [Concomitant]
     Route: 048
  18. TIZANIDINE HCL [Concomitant]
     Dosage: 4 MG ONE OR TWO TID
     Route: 048
  19. ALBUTEROL [Concomitant]
  20. ELAVIL [Concomitant]
     Dosage: 100, TAKE 1 OR 2 HS
     Route: 048
  21. KLONOPIN [Concomitant]
     Route: 048
  22. NEURONTIN [Concomitant]
  23. PROCARDIA XL [Concomitant]
     Route: 048
  24. ROBAXIN [Concomitant]
     Dosage: 750 ONE BID
     Route: 048

REACTIONS (29)
  - CARDIAC FAILURE CONGESTIVE [None]
  - INSOMNIA [None]
  - OFF LABEL USE [None]
  - INTERVERTEBRAL DISC DEGENERATION [None]
  - BIPOLAR DISORDER [None]
  - ANXIETY [None]
  - VOMITING [None]
  - DYSPNOEA [None]
  - RESTLESSNESS [None]
  - LETHARGY [None]
  - BLOOD CHOLESTEROL INCREASED [None]
  - OSTEOARTHRITIS [None]
  - DEPRESSION [None]
  - UNRESPONSIVE TO STIMULI [None]
  - FLUID RETENTION [None]
  - CONFUSIONAL STATE [None]
  - ARTHRITIS [None]
  - CHRONIC OBSTRUCTIVE PULMONARY DISEASE [None]
  - OEDEMA PERIPHERAL [None]
  - ELECTROCARDIOGRAM QT PROLONGED [None]
  - HYPERTENSION [None]
  - MENTAL STATUS CHANGES [None]
  - GASTROOESOPHAGEAL REFLUX DISEASE [None]
  - MALAISE [None]
  - PNEUMONIA [None]
  - DYSARTHRIA [None]
  - ARTHRALGIA [None]
  - MYALGIA [None]
  - TYPE 2 DIABETES MELLITUS [None]
